FAERS Safety Report 18458725 (Version 1)
Quarter: 2020Q4

REPORT INFORMATION
  Report Type: Spontaneous
  Country: US (occurrence: US)
  Receive Date: 20201103
  Receipt Date: 20201103
  Transmission Date: 20210114
  Serious: No
  Sender: FDA-Public Use
  Company Number: US-PFIZER INC-2020421936

PATIENT
  Age: 7 Decade
  Sex: Female
  Weight: 54.43 kg

DRUGS (1)
  1. ATORVASTATIN CALCIUM. [Suspect]
     Active Substance: ATORVASTATIN CALCIUM
     Indication: BLOOD CHOLESTEROL ABNORMAL
     Dosage: 10 MG, 1X/DAY (ONCE PER EVENING)
     Route: 048

REACTIONS (2)
  - Pharyngeal swelling [Recovered/Resolved]
  - Drug hypersensitivity [Unknown]
